FAERS Safety Report 6699500-3 (Version None)
Quarter: 2010Q2

REPORT INFORMATION
  Report Type: 
  Country: None (occurrence: None)
  Receive Date: 20100427
  Receipt Date: 20100427
  Transmission Date: 20101027
  Serious: Yes (Hospitalization)
  Sender: FDA-Public Use
  Company Number: None

PATIENT
  Age: 77 Year
  Sex: Male
  Weight: 120 kg

DRUGS (2)
  1. WARFARIN SODIUM [Suspect]
     Dosage: 2.5 MG SUN,TUE, THUR, SAT PO
     Route: 048
  2. WARFARIN SODIUM [Suspect]
     Dosage: 5 MON,WED,FRI

REACTIONS (3)
  - ASPIRATION [None]
  - DYSPNOEA [None]
  - EPISTAXIS [None]
